FAERS Safety Report 4822814-6 (Version None)
Quarter: 2005Q4

REPORT INFORMATION
  Report Type: 
  Country: None (occurrence: None)
  Receive Date: 20051104
  Receipt Date: 20051024
  Transmission Date: 20060501
  Serious: Yes (Other)
  Sender: FDA-Public Use
  Company Number: 2005146335

PATIENT
  Age: 59 Year
  Sex: Female
  Weight: 59.8748 kg

DRUGS (3)
  1. LIPITOR [Suspect]
     Indication: BLOOD CHOLESTEROL INCREASED
     Dosage: 20 MG(20 MG, 1 IN 1 D)
     Dates: start: 20030101
  2. ACETAMINOPHEN/DIPHENYDRAMINE (DIPHENYDRAMINE, PARACETAMOL) [Suspect]
     Indication: ILL-DEFINED DISORDER
  3. TRAZODONE HCL [Concomitant]

REACTIONS (4)
  - BLOOD CHOLESTEROL INCREASED [None]
  - ELECTROCARDIOGRAM Q WAVE ABNORMAL [None]
  - MEDICATION ERROR [None]
  - WRONG DRUG ADMINISTERED [None]
